FAERS Safety Report 19274214 (Version 2)
Quarter: 2021Q4

REPORT INFORMATION
  Report Type: Spontaneous
  Country: FR (occurrence: FR)
  Receive Date: 20210519
  Receipt Date: 20211222
  Transmission Date: 20220303
  Serious: Yes (Hospitalization)
  Sender: FDA-Public Use
  Company Number: None

PATIENT
  Age: 69 Year
  Sex: Female

DRUGS (1)
  1. FLUOROURACIL [Suspect]
     Active Substance: FLUOROURACIL
     Indication: Adenocarcinoma of colon
     Dosage: SEE COMMENTS
     Route: 042
     Dates: start: 20161007, end: 20210119

REACTIONS (1)
  - Diaphragmatic paralysis [Recovering/Resolving]

NARRATIVE: CASE EVENT DATE: 20161007
